FAERS Safety Report 18414769 (Version 1)
Quarter: 2020Q4

REPORT INFORMATION
  Report Type: Spontaneous
  Country: US (occurrence: US)
  Receive Date: 20201021
  Receipt Date: 20201021
  Transmission Date: 20210114
  Serious: Yes (Other)
  Sender: FDA-Public Use
  Company Number: None

PATIENT
  Age: 32 Year
  Sex: Female

DRUGS (1)
  1. SEYSARA [Suspect]
     Active Substance: SARECYCLINE HYDROCHLORIDE
     Indication: ACNE
     Route: 048
     Dates: start: 20200908, end: 20201019

REACTIONS (5)
  - Blood pressure increased [None]
  - Nervous system disorder [None]
  - Dizziness [None]
  - Tremor [None]
  - Palpitations [None]

NARRATIVE: CASE EVENT DATE: 20201019
